FAERS Safety Report 9492398 (Version 4)
Quarter: 2013Q4

REPORT INFORMATION
  Report Type: Report from Study
  Country: DK (occurrence: DK)
  Receive Date: 20130830
  Receipt Date: 20131212
  Transmission Date: 20140711
  Serious: Yes (Life-Threatening, Hospitalization)
  Sender: FDA-Public Use
  Company Number: DK-CELGENEUS-044-50794-13063806

PATIENT
  Age: 69 Year
  Sex: Male
  Weight: 94 kg

DRUGS (13)
  1. VIDAZA [Suspect]
     Indication: MYELODYSPLASTIC SYNDROME
     Route: 065
     Dates: start: 20130513
  2. VIDAZA [Suspect]
     Route: 065
     Dates: start: 20130610, end: 20130625
  3. REVLIMID [Suspect]
     Indication: MYELODYSPLASTIC SYNDROME
     Dosage: 10 MILLIGRAM
     Route: 048
     Dates: start: 20130513
  4. REVLIMID [Suspect]
     Dosage: 10 MILLIGRAM
     Route: 048
     Dates: start: 20130610, end: 20130625
  5. FELODIN [Concomitant]
     Indication: HYPERTENSION
     Dosage: 5 MILLIGRAM
     Route: 065
     Dates: start: 20110328, end: 20130729
  6. ZARZIO [Concomitant]
     Indication: NEUTROPENIA
     Route: 065
     Dates: start: 20130611, end: 20130706
  7. VITAMINERAL [Concomitant]
     Indication: VITAMIN SUPPLEMENTATION
     Dosage: 1 DOSAGE FORMS
     Route: 065
     Dates: start: 20130412
  8. B-COMBIN [Concomitant]
     Indication: VITAMIN SUPPLEMENTATION
     Dosage: 1 DOSAGE FORMS
     Route: 065
     Dates: start: 20130419, end: 20130805
  9. TAVEGYL [Concomitant]
     Indication: HYPERSENSITIVITY
     Dosage: 2 MILLIGRAM
     Route: 065
     Dates: start: 20130523, end: 20130525
  10. ALLOPURINOL [Concomitant]
     Indication: HYPERURICAEMIA
     Dosage: 100 MILLIGRAM
     Route: 065
     Dates: start: 20130508, end: 20130607
  11. CETIRIZINE [Concomitant]
     Indication: HYPERSENSITIVITY
     Dosage: 10 MILLIGRAM
     Route: 065
     Dates: start: 20130520, end: 20130521
  12. DEXAMETHASONE [Concomitant]
     Indication: VOMITING
     Dosage: 4 MILLIGRAM
     Route: 065
     Dates: start: 20130513, end: 20130518
  13. DEXAMETHASONE [Concomitant]
     Dosage: 4 MILLIGRAM
     Route: 065
     Dates: start: 20130610, end: 20130618

REACTIONS (4)
  - Bronchopulmonary aspergillosis [Recovered/Resolved]
  - Neutropenic infection [Recovered/Resolved]
  - Skin ulcer [Recovering/Resolving]
  - Pneumonia fungal [Recovered/Resolved]
